FAERS Safety Report 10421100 (Version 2)
Quarter: 2014Q4

REPORT INFORMATION
  Report Type: Spontaneous
  Country: US (occurrence: None)
  Receive Date: 20140722
  Receipt Date: 20141121
  Transmission Date: 20150528
  Serious: No
  Sender: FDA-Public Use
  Company Number: 163-10004-14055046

PATIENT
  Age: 61 Year
  Sex: Female
  Weight: 111.13 kg

DRUGS (4)
  1. ALBUTEROL SULFATE(SALBUTAMOL SULFATE)(UNKNOW [Concomitant]
  2. OTEZLA [Suspect]
     Active Substance: APREMILAST
     Indication: PSORIATIC ARTHROPATHY
     Dosage: 60MG, 2 IN 1 D, PO
     Route: 048
     Dates: start: 20140514, end: 201405
  3. TYLENOL(PARACETAMOL)(UNKNOWN) [Concomitant]
  4. SINUS NASAL SPRAY 12 HOUR(SINUS)(UNKNOWN) L) UNK [Concomitant]

REACTIONS (3)
  - Vertigo [None]
  - Dizziness [None]
  - Nausea [None]

NARRATIVE: CASE EVENT DATE: 20140514
